FAERS Safety Report 7532380-2 (Version None)
Quarter: 2011Q2

REPORT INFORMATION
  Report Type: 
  Country: None (occurrence: None)
  Receive Date: 20110608
  Receipt Date: 20110603
  Transmission Date: 20111010
  Serious: Yes (Hospitalization, Other)
  Sender: FDA-Public Use
  Company Number: US-PFIZER INC-2010006394

PATIENT
  Sex: Female

DRUGS (41)
  1. GLIPIZIDE [Concomitant]
     Indication: DIABETES MELLITUS
     Dosage: UNK
     Dates: start: 20050624, end: 20091001
  2. OXCARBAZEPINE [Concomitant]
     Indication: AFFECTIVE DISORDER
     Dosage: UNK
     Dates: start: 20071106, end: 20080601
  3. AZITHROMYCIN [Concomitant]
     Indication: BACTERIAL INFECTION
     Dosage: UNK
     Dates: start: 20080108, end: 20081101
  4. AMBIEN [Concomitant]
     Indication: INSOMNIA
     Dosage: UNK
     Dates: start: 20051117, end: 20081201
  5. CEPHALEXIN [Concomitant]
     Indication: BACTERIAL INFECTION
     Dosage: UNK
     Dates: start: 20060605, end: 20081201
  6. MECLIZINE [Concomitant]
     Indication: DIZZINESS
     Dosage: UNK
     Dates: start: 20060621
  7. METOCLOPRAMIDE [Concomitant]
     Indication: DYSPEPSIA
     Dosage: UNK
     Dates: start: 20061121, end: 20080401
  8. ACETAMINOPHEN W/ CODEINE [Concomitant]
     Indication: ANALGESIC THERAPY
     Dosage: UNK
     Dates: start: 20070817, end: 20091201
  9. SITAGLIPTIN [Concomitant]
     Indication: DIABETES MELLITUS
     Dosage: UNK
     Dates: start: 20070914, end: 20081201
  10. LEVOXYL [Concomitant]
     Indication: THYROID HORMONE REPLACEMENT THERAPY
     Dosage: UNK
     Dates: start: 20050706
  11. PREVACID [Concomitant]
     Indication: GASTROOESOPHAGEAL REFLUX DISEASE
     Dosage: UNK
     Dates: start: 20051117
  12. MAGNESIUM OXIDE [Concomitant]
     Indication: HIATUS HERNIA
     Dosage: UNK
     Dates: start: 20051118, end: 20090101
  13. CHERATUSSIN COUGH SYRUP [Concomitant]
     Indication: COUGH
     Dosage: UNK
     Dates: start: 20051130, end: 20090401
  14. CHERATUSSIN COUGH SYRUP [Concomitant]
     Indication: NASAL CONGESTION
  15. ACETAMINOPHEN [Concomitant]
     Indication: PAIN
     Dosage: UNK
     Dates: start: 20060605
  16. PREDNISONE [Concomitant]
     Indication: ASTHMA
     Dosage: UNK
     Dates: start: 20060818, end: 20090601
  17. HYDROXYZINE [Concomitant]
     Indication: DEPRESSION
     Dosage: UNK
     Dates: start: 20060818
  18. HYDROXYZINE [Concomitant]
     Indication: ANXIETY
  19. BENZONATATE [Concomitant]
     Indication: THROAT IRRITATION
     Dosage: UNK
     Dates: start: 20060112, end: 20080101
  20. PROMETHAZINE [Concomitant]
     Indication: NAUSEA
     Dosage: UNK
     Dates: start: 20060216, end: 20080401
  21. LISINOPRIL [Concomitant]
     Indication: HYPERTENSION
     Dosage: UNK
     Dates: start: 20060328, end: 20080601
  22. METHOCARBAMOL [Concomitant]
     Indication: MUSCLE RELAXANT THERAPY
     Dosage: UNK
     Dates: start: 20061011, end: 20080101
  23. TRAZODONE [Concomitant]
     Indication: DEPRESSION
     Dosage: UNK
     Dates: start: 20070420, end: 20091201
  24. ACETAMINOPHEN AND OXYCODONE HCL [Concomitant]
     Indication: ANALGESIC THERAPY
     Dosage: UNK
     Dates: start: 20041016, end: 20090901
  25. TARKA [Concomitant]
     Indication: HYPERTENSION
     Dosage: UNK
     Dates: start: 20050627, end: 20080701
  26. CALCITRIOL [Concomitant]
     Indication: HYPOPARATHYROIDISM
     Dosage: UNK
     Dates: start: 20051117
  27. CIPROFLOXACIN [Concomitant]
     Indication: URINARY TRACT INFECTION
  28. PROPOXYPHENE HCL AND ACETAMINOPHEN [Concomitant]
     Indication: ANALGESIC THERAPY
     Dosage: UNK
     Dates: start: 20060724, end: 20080628
  29. AMOXICILLIN AND CLAVULANATE POTASSIUM [Concomitant]
     Indication: BACTERIAL INFECTION
     Dosage: UNK
     Dates: start: 20061201, end: 20090901
  30. AMOXICILLIN AND CLAVULANATE POTASSIUM [Concomitant]
     Indication: ABSCESS
  31. REQUIP [Concomitant]
     Indication: RESTLESS LEGS SYNDROME
     Dosage: UNK
     Dates: start: 20070212
  32. CHANTIX [Suspect]
     Indication: SMOKING CESSATION THERAPY
     Dosage: STARTING MONTH PACK AND CONTINUING MONTH PACK
     Dates: start: 20071231, end: 20080506
  33. CLONAZEPAM [Concomitant]
     Indication: ANXIETY
     Dosage: UNK
     Dates: start: 20051202, end: 20080401
  34. TEMAZEPAM [Concomitant]
     Indication: INSOMNIA
     Dosage: UNK
     Dates: start: 20060322, end: 20080401
  35. LEXAPRO [Concomitant]
     Indication: DEPRESSION
     Dosage: UNK
     Dates: start: 20070118, end: 20080401
  36. SALSALATE [Concomitant]
     Indication: ANALGESIC THERAPY
     Dosage: UNK
     Dates: start: 20071016, end: 20080401
  37. AMITRIPTYLINE [Concomitant]
     Indication: DEPRESSION
     Dosage: UNK
     Dates: start: 20080430, end: 20080502
  38. CIPROFLOXACIN [Concomitant]
     Indication: BACTERIAL INFECTION
     Dosage: UNK
     Dates: start: 20051117, end: 20080901
  39. RANITIDINE [Concomitant]
     Indication: GASTROOESOPHAGEAL REFLUX DISEASE
     Dosage: UNK
     Dates: start: 20060324
  40. ACETAMINOPHEN AND HYDROCODONE BITARTRATE [Concomitant]
     Indication: ANALGESIC THERAPY
     Dosage: UNK
     Dates: start: 20060614, end: 20090901
  41. METHYLPREDNISOLONE [Concomitant]
     Indication: ASTHMA
     Dosage: UNK
     Dates: start: 20060818, end: 20090601

REACTIONS (7)
  - MAJOR DEPRESSION [None]
  - ANXIETY [None]
  - BIPOLAR DISORDER [None]
  - AMNESIA [None]
  - INTENTIONAL OVERDOSE [None]
  - SUICIDE ATTEMPT [None]
  - LOSS OF CONSCIOUSNESS [None]
